FAERS Safety Report 5488850-4 (Version None)
Quarter: 2007Q4

REPORT INFORMATION
  Report Type: 
  Country: None (occurrence: None)
  Receive Date: 20071017
  Receipt Date: 20071008
  Transmission Date: 20080405
  Serious: Yes (Other)
  Sender: FDA-Public Use
  Company Number: US-PFIZER INC-2007084173

PATIENT
  Sex: Female

DRUGS (1)
  1. LIPITOR [Suspect]
     Indication: BLOOD CHOLESTEROL INCREASED

REACTIONS (13)
  - BLOOD CHOLESTEROL INCREASED [None]
  - COGNITIVE DISORDER [None]
  - DEMENTIA ALZHEIMER'S TYPE [None]
  - DEPRESSION [None]
  - FATIGUE [None]
  - FREQUENT BOWEL MOVEMENTS [None]
  - HEADACHE [None]
  - MUSCLE SPASMS [None]
  - NIGHTMARE [None]
  - POLLAKIURIA [None]
  - URINARY TRACT INFECTION [None]
  - VAGINAL INFECTION [None]
  - VISUAL DISTURBANCE [None]
